FAERS Safety Report 7485898-5 (Version None)
Quarter: 2011Q2

REPORT INFORMATION
  Report Type: 
  Country: None (occurrence: None)
  Receive Date: 20110517
  Receipt Date: 20110121
  Transmission Date: 20111010
  Serious: Yes (Other)
  Sender: FDA-Public Use
  Company Number: US-BAYER-2011-022975

PATIENT
  Weight: 104.31 kg

DRUGS (12)
  1. PROZAC [Concomitant]
     Dosage: 20 MG, QD
  2. SYNTHROID [Concomitant]
     Dosage: 25 MCG/24HR, UNK
  3. NAPROXEN [Concomitant]
     Dosage: 500 MG, UNK
     Dates: start: 20061207
  4. DOXYCYCLINE [Concomitant]
     Dosage: 100 MG, BID
  5. LOVAZA [Concomitant]
     Dosage: 1000 MG, TID
  6. COLCHICINE [Concomitant]
     Dosage: 0.6 MG, QD
  7. YAZ [Suspect]
     Indication: CONTRACEPTION
     Dosage: 1 DF, QD
     Dates: start: 20070101, end: 20090101
  8. TRICOR [Concomitant]
     Dosage: UNK
     Dates: start: 20081022
  9. ANTIBIOTICS [Concomitant]
     Dosage: UNK UNK, PRN
  10. AZITHROMYCIN [Concomitant]
     Dosage: 250 MG, UNK
     Route: 048
     Dates: start: 20070512
  11. VITAMIN C [Concomitant]
     Dosage: UNK UNK, PRN
  12. INDOMETHACIN [Concomitant]
     Indication: GOUT
     Dosage: 25 MG, UNK
     Dates: start: 20081028

REACTIONS (4)
  - CHOLECYSTITIS CHRONIC [None]
  - CHOLESTEROSIS [None]
  - ABDOMINAL PAIN [None]
  - BILIARY DYSKINESIA [None]
